FAERS Safety Report 5835042-2 (Version None)
Quarter: 2008Q3

REPORT INFORMATION
  Report Type: 
  Country: None (occurrence: None)
  Receive Date: 20080731
  Receipt Date: 20071008
  Transmission Date: 20090109
  Serious: Yes (Other)
  Sender: FDA-Public Use
  Company Number: US-JNJFOC-20071001954

PATIENT
  Age: 7 Month
  Sex: Female
  Weight: 6.3504 kg

DRUGS (1)
  1. MOTRIN [Suspect]
     Indication: TEETHING
     Dosage: 25 - 50 MG, UP TO TWO TWICE A DAY, AS NECESSARY
     Dates: start: 20070501

REACTIONS (1)
  - CONVULSION [None]
